FAERS Safety Report 8213702-6 (Version None)
Quarter: 2012Q1

REPORT INFORMATION
  Report Type: 
  Country: None (occurrence: None)
  Receive Date: 20120315
  Receipt Date: 20120309
  Transmission Date: 20120608
  Serious: Yes (Other)
  Sender: FDA-Public Use
  Company Number: JP-GILEAD-2012-0052198

PATIENT
  Sex: Female

DRUGS (4)
  1. FUROSEMIDE [Concomitant]
     Route: 065
  2. AMBRISENTAN [Suspect]
     Indication: PULMONARY ARTERIAL HYPERTENSION
     Dosage: 5MG PER DAY
     Route: 048
     Dates: start: 20111109, end: 20120206
  3. PROCYLIN [Concomitant]
     Route: 048
  4. WARFARIN SODIUM [Concomitant]
     Route: 048

REACTIONS (2)
  - HAEMOPTYSIS [None]
  - ANAEMIA [None]
